FAERS Safety Report 9173755 (Version 1)
Quarter: 2013Q1

REPORT INFORMATION
  Report Type: Spontaneous
  Country: US (occurrence: US)
  Receive Date: 20130320
  Receipt Date: 20130320
  Transmission Date: 20140127
  Serious: No
  Sender: FDA-Public Use
  Company Number: US-ASTRAZENECA-2013SE12578

PATIENT
  Age: 70 Year
  Sex: Female
  Weight: 71.2 kg

DRUGS (2)
  1. CRESTOR [Suspect]
     Indication: DIABETES MELLITUS
     Route: 048
     Dates: start: 2012
  2. NORVASC [Concomitant]
     Indication: BLOOD PRESSURE

REACTIONS (2)
  - Blood calcium increased [Unknown]
  - Off label use [Unknown]
